FAERS Safety Report 6113385-5 (Version None)
Quarter: 2009Q1

REPORT INFORMATION
  Report Type: 
  Country: None (occurrence: None)
  Receive Date: 20090312
  Receipt Date: 20090306
  Transmission Date: 20090719
  Serious: Yes (Other)
  Sender: FDA-Public Use
  Company Number: PT-CELGENEUS-130-20785-09030387

PATIENT
  Age: 33 Year
  Sex: Male

DRUGS (5)
  1. THALOMID [Suspect]
     Indication: ERYTHEMA NODOSUM LEPROSUM
     Route: 048
  2. THALOMID [Suspect]
     Route: 048
  3. PREDNISOLONE [Concomitant]
     Indication: BORDERLINE LEPROSY
     Route: 065
  4. PREDNISOLONE [Concomitant]
     Route: 065
  5. CORTICOSTEROID [Concomitant]
     Indication: DRUG USE FOR UNKNOWN INDICATION
     Route: 065

REACTIONS (3)
  - DEEP VEIN THROMBOSIS [None]
  - PULMONARY EMBOLISM [None]
  - PULMONARY INFARCTION [None]
